FAERS Safety Report 4377373-1 (Version None)
Quarter: 2004Q2

REPORT INFORMATION
  Report Type: 
  Country: None (occurrence: None)
  Receive Date: 20040609
  Receipt Date: 20040402
  Transmission Date: 20050107
  Serious: No
  Sender: FDA-Public Use
  Company Number: 2004207822US

PATIENT
  Age: 85 Year
  Sex: Male

DRUGS (1)
  1. BEXTRA [Suspect]
     Indication: OSTEOARTHRITIS
     Dates: start: 20040301

REACTIONS (2)
  - DIFFICULTY IN WALKING [None]
  - DRUG INEFFECTIVE [None]
